FAERS Safety Report 8186254-7 (Version None)
Quarter: 2012Q1

REPORT INFORMATION
  Report Type: 
  Country: None (occurrence: None)
  Receive Date: 20120301
  Receipt Date: 20120217
  Transmission Date: 20120608
  Serious: Yes (Other)
  Sender: FDA-Public Use
  Company Number: EU-2011-10244

PATIENT
  Sex: Female
  Weight: 55 kg

DRUGS (11)
  1. DALTEPARIN SODIUM [Concomitant]
  2. CIPROFLOXACIN [Concomitant]
  3. SAMSCA [Suspect]
     Indication: HYPONATRAEMIA
     Dosage: 7.5 MG MILLIGRAM(S), QOD, ORAL
     Route: 048
     Dates: start: 20110512, end: 20110517
  4. SAMSCA [Suspect]
     Indication: HYPONATRAEMIA
     Dosage: 7.5 MG MILLIGRAM(S), QOD, ORAL
     Route: 048
     Dates: start: 20110518
  5. METOPROLOL SUCCINATE [Concomitant]
  6. GLIQUIDONE (GLIQUIDONE) [Concomitant]
  7. SALINE (SALINE) [Concomitant]
  8. AMLODIPINE [Concomitant]
  9. CEFTRIAXONE [Concomitant]
  10. ACETYLCYSTEINE [Concomitant]
  11. RINGER LACTATE (CALCIUM CHLORIDE DIHYDRATE, POTASSIUM CHLORIDE, SODIUM [Concomitant]

REACTIONS (5)
  - DUODENAL ULCER [None]
  - WRONG TECHNIQUE IN DRUG USAGE PROCESS [None]
  - PYREXIA [None]
  - GASTROINTESTINAL HAEMORRHAGE [None]
  - HYPOKALAEMIA [None]
